FAERS Safety Report 7807953-X (Version None)
Quarter: 2011Q4

REPORT INFORMATION
  Report Type: 
  Country: None (occurrence: None)
  Receive Date: 20111011
  Receipt Date: 20111011
  Transmission Date: 20120403
  Serious: No
  Sender: FDA-Public Use
  Company Number: None

PATIENT
  Age: 41 Year
  Sex: Female
  Weight: 79.378 kg

DRUGS (1)
  1. CYMBALTA [Suspect]
     Indication: ANXIETY
     Dates: start: 20110220, end: 20111007

REACTIONS (7)
  - ANGER [None]
  - WEIGHT INCREASED [None]
  - HEART RATE IRREGULAR [None]
  - DIZZINESS [None]
  - IRRITABILITY [None]
  - WEIGHT DECREASED [None]
  - PRESYNCOPE [None]
